FAERS Safety Report 19485160 (Version 2)
Quarter: 2021Q3

REPORT INFORMATION
  Report Type: Report from Study
  Country: US (occurrence: US)
  Receive Date: 20210702
  Receipt Date: 20210713
  Transmission Date: 20211014
  Serious: Yes (Death, Hospitalization)
  Sender: FDA-Public Use
  Company Number: US-ROCHE-2859939

PATIENT
  Age: 74 Year
  Sex: Male
  Weight: 76.4 kg

DRUGS (7)
  1. OBINUTUZUMAB. [Suspect]
     Active Substance: OBINUTUZUMAB
     Indication: FOLLICULAR LYMPHOMA
     Dosage: ON DAYS 1, 8 AND 15 OF CYCLE 1 AND ON DAY 1 OF CYCLES 2 TO 6??MOST RECENT DOSE OF OBNITUZUMAB PRIOR
     Route: 042
     Dates: start: 20190807
  2. POLYETHYLENE GLYCOL 3350. [Concomitant]
     Active Substance: POLYETHYLENE GLYCOL 3350
     Indication: CONSTIPATION
     Dates: start: 20190606
  3. ACYCLOVIR. [Concomitant]
     Active Substance: ACYCLOVIR
     Dates: start: 20190705
  4. VENETOCLAX. [Suspect]
     Active Substance: VENETOCLAX
     Indication: FOLLICULAR LYMPHOMA
     Dosage: ON 22/JUL/2020, RECEIVED MOST RECENT DOSE OF VENETOCLAX PRIOR TO SAE AT 800 MG
     Route: 048
     Dates: start: 20190807
  5. POLATUZUMAB VEDOTIN. [Suspect]
     Active Substance: POLATUZUMAB VEDOTIN
     Indication: FOLLICULAR LYMPHOMA
     Dosage: ON 21/NOV/2019, RECEIVED MOST RECENT DOSE OF POLATUZUMAB VEDATOIN AT 138 MG.
     Route: 042
     Dates: start: 20190807
  6. LEVOTHYROXINE. [Concomitant]
     Active Substance: LEVOTHYROXINE
     Indication: HYPOTHYROIDISM
     Dates: start: 20190606
  7. PROCHLORPERAZINE. [Concomitant]
     Active Substance: PROCHLORPERAZINE
     Indication: NAUSEA
     Dates: start: 20190602

REACTIONS (1)
  - COVID-19 pneumonia [Not Recovered/Not Resolved]

NARRATIVE: CASE EVENT DATE: 20210211
